FAERS Safety Report 11966718 (Version 1)
Quarter: 2016Q1

REPORT INFORMATION
  Report Type: Spontaneous
  Country: DK (occurrence: FR)
  Receive Date: 20160127
  Receipt Date: 20160127
  Transmission Date: 20160526
  Serious: Yes (Death, Life-Threatening)
  Sender: FDA-Public Use
  Company Number: FR-FRI-1000082310

PATIENT
  Age: 64 Year
  Sex: Male

DRUGS (3)
  1. KARDEGIC [Interacting]
     Active Substance: ASPIRIN LYSINE
     Indication: CARDIOVASCULAR EVENT PROPHYLAXIS
     Dosage: 75 MG
     Route: 048
     Dates: start: 20151222, end: 20151229
  2. ESCITALOPRAM [Suspect]
     Active Substance: ESCITALOPRAM OXALATE
     Indication: DEPRESSION
     Dosage: 10 MG
     Route: 048
     Dates: start: 20151224, end: 20160102
  3. LOVENOX [Interacting]
     Active Substance: ENOXAPARIN SODIUM
     Indication: THROMBOSIS PROPHYLAXIS
     Dosage: 16000 IU
     Route: 058
     Dates: start: 20151221, end: 20160103

REACTIONS (2)
  - Cerebral haematoma [Fatal]
  - Drug interaction [Fatal]

NARRATIVE: CASE EVENT DATE: 20160103
